FAERS Safety Report 24257146 (Version 1)
Quarter: 2024Q3

REPORT INFORMATION
  Report Type: Spontaneous
  Country: IE (occurrence: IE)
  Receive Date: 20240828
  Receipt Date: 20240828
  Transmission Date: 20241016
  Serious: Yes (Other)
  Sender: RANBAXY
  Company Number: IE-SUN PHARMACEUTICAL INDUSTRIES LTD-2024R1-464583

PATIENT
  Sex: Male

DRUGS (3)
  1. GLYCOPYRROLATE [Suspect]
     Active Substance: GLYCOPYRROLATE
     Indication: Klinefelter^s syndrome
     Dosage: UNK
     Route: 058
  2. MIDAZOLAM [Suspect]
     Active Substance: MIDAZOLAM
     Indication: Klinefelter^s syndrome
     Dosage: UNK
     Route: 058
  3. MORPHINE [Suspect]
     Active Substance: MORPHINE
     Indication: Klinefelter^s syndrome
     Dosage: UNK
     Route: 058

REACTIONS (1)
  - Condition aggravated [Unknown]
